FAERS Safety Report 7062280-6 (Version None)
Quarter: 2010Q4

REPORT INFORMATION
  Report Type: 
  Country: None (occurrence: None)
  Receive Date: 20101026
  Receipt Date: 20101013
  Transmission Date: 20110411
  Serious: Yes (Hospitalization, Other)
  Sender: FDA-Public Use
  Company Number: US-CELGENEUS-163-21880-10092830

PATIENT
  Sex: Male
  Weight: 93.524 kg

DRUGS (1)
  1. REVLIMID [Suspect]
     Route: 048
     Dates: start: 20100824, end: 20100928

REACTIONS (2)
  - CONVULSION [None]
  - MYCOSIS FUNGOIDES [None]
